FAERS Safety Report 8272657-9 (Version None)
Quarter: 2012Q2

REPORT INFORMATION
  Report Type: 
  Country: None (occurrence: None)
  Receive Date: 20120411
  Receipt Date: 20120402
  Transmission Date: 20120825
  Serious: No
  Sender: FDA-Public Use
  Company Number: US-BAXTER-2012BAX000105

PATIENT
  Age: 9 Year
  Sex: Female

DRUGS (1)
  1. GAMMAGARD LIQUID [Suspect]

REACTIONS (3)
  - PYREXIA [None]
  - HEADACHE [None]
  - SENSATION OF FOREIGN BODY [None]
